FAERS Safety Report 8346940-2 (Version None)
Quarter: 2012Q2

REPORT INFORMATION
  Report Type: 
  Country: None (occurrence: None)
  Receive Date: 20120509
  Receipt Date: 20120425
  Transmission Date: 20120825
  Serious: Yes (Death, Hospitalization)
  Sender: FDA-Public Use
  Company Number: DE-RANBAXY-2012US-55906

PATIENT
  Sex: Male

DRUGS (8)
  1. AMOXICILLIN [Suspect]
     Indication: PEPTIC ULCER
     Route: 048
     Dates: start: 20120307
  2. FLAGYL [Suspect]
     Indication: PEPTIC ULCER
     Dosage: UNK
     Route: 048
     Dates: start: 20120307, end: 20120309
  3. PANTOPRAZOLE [Suspect]
     Indication: PEPTIC ULCER
     Dosage: UNK
     Route: 048
     Dates: start: 20120307
  4. AMLODIPINE BESYLATE [Concomitant]
     Indication: PRODUCT USED FOR UNKNOWN INDICATION
     Route: 065
  5. FLAGYL [Suspect]
     Dosage: UNK
     Route: 042
     Dates: start: 20120309, end: 20120315
  6. CLARITHROMYCIN [Suspect]
     Indication: PEPTIC ULCER
     Route: 048
     Dates: start: 20120307
  7. APROVEL [Concomitant]
     Indication: PRODUCT USED FOR UNKNOWN INDICATION
     Route: 065
  8. POLYETHYLENE GLYCOL [Concomitant]
     Indication: PRODUCT USED FOR UNKNOWN INDICATION
     Route: 065

REACTIONS (2)
  - HAEMOGLOBIN DECREASED [None]
  - ORGANISING PNEUMONIA [None]
